APPROVED DRUG PRODUCT: AMMONIUM CHLORIDE IN PLASTIC CONTAINER
Active Ingredient: AMMONIUM CHLORIDE
Strength: 5MEQ/ML
Dosage Form/Route: INJECTABLE;INJECTION
Application: A088366 | Product #001
Applicant: HOSPIRA INC
Approved: Jun 13, 1984 | RLD: No | RS: Yes | Type: RX